FAERS Safety Report 5659504-6 (Version None)
Quarter: 2008Q1

REPORT INFORMATION
  Report Type: 
  Country: None (occurrence: None)
  Receive Date: 20080311
  Receipt Date: 20080302
  Transmission Date: 20080703
  Serious: Yes (Other)
  Sender: FDA-Public Use
  Company Number: PHHY2008US02523

PATIENT
  Age: 64 Year
  Sex: Male

DRUGS (1)
  1. EXJADE [Suspect]
     Indication: SICKLE CELL ANAEMIA
     Dosage: 500 MG, TID
     Route: 048
     Dates: start: 20080301

REACTIONS (5)
  - BALANCE DISORDER [None]
  - CHILLS [None]
  - PRURITUS [None]
  - RASH [None]
  - SOMNOLENCE [None]
